FAERS Safety Report 19298416 (Version 1)
Quarter: 2021Q2

REPORT INFORMATION
  Report Type: Spontaneous
  Country: CN (occurrence: CN)
  Receive Date: 20210525
  Receipt Date: 20210525
  Transmission Date: 20210717
  Serious: Yes (Other)
  Sender: FDA-Public Use
  Company Number: CN-JIANGSU HENGRUI MEDICINE CO., LTD.-2111911

PATIENT
  Age: 70 Year
  Sex: Male
  Weight: 75 kg

DRUGS (9)
  1. PROPOFOL. [Suspect]
     Active Substance: PROPOFOL
     Route: 041
     Dates: start: 20210505, end: 20210505
  2. SODIUM CHLORIDE. [Concomitant]
     Active Substance: SODIUM CHLORIDE
     Route: 041
     Dates: start: 20210505, end: 20210510
  3. CISATRACURIUM BESYLATE INJECTION USP, 20 MG/10 ML (2 MG/ML) MULTI?DOSE [Suspect]
     Active Substance: CISATRACURIUM BESYLATE
     Indication: MUSCLE RELAXANT THERAPY
     Dates: start: 20210505, end: 20210505
  4. SUFENTANIL CITRATE. [Suspect]
     Active Substance: SUFENTANIL CITRATE
     Dates: start: 20210505, end: 20210505
  5. SEVOFLURANE. [Suspect]
     Active Substance: SEVOFLURANE
     Route: 055
     Dates: start: 20210505, end: 20210505
  6. MIDAZOLAM. [Suspect]
     Active Substance: MIDAZOLAM
     Dates: start: 20210505, end: 20210505
  7. FLURBIPROFEN AXETIL [Suspect]
     Active Substance: FLURBIPROFEN AXETIL
     Dates: start: 20210505, end: 20210510
  8. SODIUM CHLORIDE. [Concomitant]
     Active Substance: SODIUM CHLORIDE
     Dates: start: 20210505, end: 20210505
  9. REMIFENTANIL HYDROCHLORIDE. [Suspect]
     Active Substance: REMIFENTANIL HYDROCHLORIDE
     Dates: start: 20210505, end: 20210505

REACTIONS (2)
  - Hepatic function abnormal [Recovered/Resolved]
  - Concomitant disease aggravated [Recovered/Resolved]

NARRATIVE: CASE EVENT DATE: 20210506
